FAERS Safety Report 7476762-6 (Version None)
Quarter: 2011Q2

REPORT INFORMATION
  Report Type: 
  Country: None (occurrence: None)
  Receive Date: 20110512
  Receipt Date: 20110503
  Transmission Date: 20111010
  Serious: Yes (Disabling, Other)
  Sender: FDA-Public Use
  Company Number: FR-GENZYME-CLOF-1001507

PATIENT
  Sex: Male
  Weight: 176.5 kg

DRUGS (9)
  1. ONCASPAR [Suspect]
     Indication: ACUTE LYMPHOCYTIC LEUKAEMIA
     Dosage: UNK
     Route: 065
  2. MITOXANTRONE [Suspect]
     Indication: ACUTE LYMPHOCYTIC LEUKAEMIA
     Dosage: UNK
     Route: 065
  3. RIVOTRIL [Concomitant]
     Indication: PRODUCT USED FOR UNKNOWN INDICATION
     Dosage: 0.9 MG, UNK
     Route: 065
     Dates: start: 20110216
  4. DEXAMETHASONE [Suspect]
     Indication: ACUTE LYMPHOCYTIC LEUKAEMIA
     Dosage: UNK
     Route: 065
  5. MESNA [Concomitant]
     Indication: PROPHYLAXIS
     Dosage: 1000 MG, UNK
     Route: 065
     Dates: start: 20110216, end: 20110222
  6. NEXIUM [Concomitant]
     Indication: ANTACID THERAPY
     Dosage: 40 MG, UNK
     Route: 065
     Dates: start: 20110216, end: 20110319
  7. ETOPOSIDE [Suspect]
     Indication: ACUTE LYMPHOCYTIC LEUKAEMIA
     Dosage: UNK
     Route: 065
  8. BACTRIM [Concomitant]
     Indication: PROPHYLAXIS
     Dosage: 800 MG, UNK
     Route: 065
     Dates: start: 20110216
  9. EVOLTRA [Suspect]
     Indication: ACUTE LYMPHOCYTIC LEUKAEMIA
     Dosage: 40 MG/M2, QDX5
     Route: 042
     Dates: start: 20110217, end: 20110221

REACTIONS (2)
  - SKIN EXFOLIATION [None]
  - PALMAR-PLANTAR ERYTHRODYSAESTHESIA SYNDROME [None]
